FAERS Safety Report 9326133 (Version 1)
Quarter: 2013Q2

REPORT INFORMATION
  Report Type: Spontaneous
  Country: US (occurrence: None)
  Receive Date: 20130603
  Receipt Date: 20130603
  Transmission Date: 20140414
  Serious: Yes (Other)
  Sender: FDA-Public Use
  Company Number: None

PATIENT
  Age: 61 Year
  Sex: Male
  Weight: 97.52 kg

DRUGS (1)
  1. CYTARABINE [Suspect]
     Indication: NON-HODGKIN^S LYMPHOMA
     Route: 041
     Dates: start: 20130530, end: 20130602

REACTIONS (4)
  - Rash [None]
  - Phlebitis [None]
  - Pyrexia [None]
  - Bone pain [None]
